FAERS Safety Report 6860619-5 (Version None)
Quarter: 2010Q3

REPORT INFORMATION
  Report Type: 
  Country: None (occurrence: None)
  Receive Date: 20100715
  Receipt Date: 20100701
  Transmission Date: 20110219
  Serious: Yes (Hospitalization, Other)
  Sender: FDA-Public Use
  Company Number: 7009814

PATIENT
  Age: 30 Year
  Sex: Female

DRUGS (2)
  1. REBIF [Suspect]
     Indication: PRODUCT USED FOR UNKNOWN INDICATION
     Dosage: 44 MCG, 3 IN 1 WK, SUBCUTANEOUS
     Route: 058
     Dates: start: 20100319
  2. IBUPROFEN [Concomitant]

REACTIONS (9)
  - BACTERIAL INFECTION [None]
  - CONDITION AGGRAVATED [None]
  - DIABETES MELLITUS [None]
  - DIVERTICULITIS [None]
  - HEADACHE [None]
  - HYPOAESTHESIA [None]
  - INJECTION SITE PAIN [None]
  - INJECTION SITE REACTION [None]
  - PARAESTHESIA [None]
